FAERS Safety Report 6729818-7 (Version None)
Quarter: 2010Q2

REPORT INFORMATION
  Report Type: 
  Country: None (occurrence: None)
  Receive Date: 20100518
  Receipt Date: 20100506
  Transmission Date: 20101027
  Serious: Yes (Hospitalization, Other)
  Sender: FDA-Public Use
  Company Number: US-PFIZER INC-2010037482

PATIENT
  Sex: Male
  Weight: 82 kg

DRUGS (12)
  1. SUTENT [Suspect]
     Indication: METASTATIC NEOPLASM
     Dosage: 50 MG, UNK
     Dates: end: 20100307
  2. ZOMETA [Concomitant]
     Dosage: UNK
  3. CITALOPRAM [Concomitant]
     Dosage: 20 MG, 1X/DAY
  4. NEURONTIN [Concomitant]
     Dosage: 300 MG, 3X/DAY
     Route: 048
  5. IBUPROFEN [Concomitant]
     Dosage: FREQUENCY: 3X/DAY,
  6. METFORMIN [Concomitant]
     Dosage: 500 MG, 3X/DAY
  7. SIMVASTATIN [Concomitant]
     Dosage: 40 MG, 1X/DAY
  8. ACETYLSALICYLIC ACID [Concomitant]
     Dosage: 325 MG, 1X/DAY
  9. FOLIC ACID [Concomitant]
     Dosage: UNK
  10. LOVAZA [Concomitant]
     Dosage: UNK
  11. LISINOPRIL [Concomitant]
     Dosage: 10 MG, 1X/DAY
  12. NIACIN [Concomitant]
     Dosage: 2000 MG, 1X/DAY

REACTIONS (6)
  - DECREASED APPETITE [None]
  - DEHYDRATION [None]
  - DELIRIUM [None]
  - FATIGUE [None]
  - HYPONATRAEMIA [None]
  - PLATELET COUNT DECREASED [None]
